FAERS Safety Report 22122243 (Version 1)
Quarter: 2023Q1

REPORT INFORMATION
  Report Type: Spontaneous
  Country: US (occurrence: US)
  Receive Date: 20230321
  Receipt Date: 20230321
  Transmission Date: 20230417
  Serious: No
  Sender: FDA-Public Use
  Company Number: US-BRISTOL-MYERS SQUIBB COMPANY-2023-040959

PATIENT
  Age: 68 Year
  Sex: Male

DRUGS (4)
  1. POMALYST [Suspect]
     Active Substance: POMALIDOMIDE
     Indication: Type 2 diabetes mellitus
  2. POMALYST [Suspect]
     Active Substance: POMALIDOMIDE
     Dosage: TAKE 1 CAPSULE DAILY FOR 21 DAYS ON FOLLOWED BY 7 DAYS OFF.
     Route: 048
     Dates: start: 20220404
  3. POMALYST [Suspect]
     Active Substance: POMALIDOMIDE
     Dosage: TAKE 1 CAPSULE DAILY FOR 21 DAYS ON FOLLOWED BY 7 DAYS OFF.
  4. POMALYST [Suspect]
     Active Substance: POMALIDOMIDE
     Dosage: FOR 21 DAYS ON, 7 DAYS OFF, TAKE 1 CAPSULE BY MOUTH EVERY DAY FOR 21 DAYS ON THEN 7 DAYS OFF
     Route: 048

REACTIONS (7)
  - Asthenia [Unknown]
  - Insomnia [Unknown]
  - Pain [Unknown]
  - Nausea [Unknown]
  - Product dose omission issue [Unknown]
  - Cough [Unknown]
  - Off label use [Unknown]
